FAERS Safety Report 6240671-0 (Version None)
Quarter: 2009Q2

REPORT INFORMATION
  Report Type: 
  Country: None (occurrence: None)
  Receive Date: 20090623
  Receipt Date: 20081224
  Transmission Date: 20091009
  Serious: No
  Sender: FDA-Public Use
  Company Number: US-ASTRAZENECA-2008UW28722

PATIENT
  Age: 44 Year
  Sex: Female
  Weight: 49.9 kg

DRUGS (5)
  1. PULMICORT-100 [Suspect]
     Route: 055
  2. ASMANEX TWISTHALER [Concomitant]
  3. RHINOCORT [Concomitant]
     Route: 045
  4. BROVANA [Concomitant]
     Dosage: 15 UG/ 2ML
     Route: 055
     Dates: start: 20080101
  5. XOPENEX [Concomitant]
     Dosage: 1.25 MG/3 ML
     Route: 055

REACTIONS (2)
  - BRONCHOSPASM [None]
  - NERVOUSNESS [None]
